FAERS Safety Report 25606042 (Version 1)
Quarter: 2025Q3

REPORT INFORMATION
  Report Type: Spontaneous
  Country: EU (occurrence: EU)
  Receive Date: 20250725
  Receipt Date: 20250725
  Transmission Date: 20251021
  Serious: Yes (Hospitalization)
  Sender: RANBAXY
  Company Number: EU-SUN PHARMACEUTICAL INDUSTRIES LTD-2025RR-518664

PATIENT
  Age: 79 Year
  Sex: Female
  Weight: 60 kg

DRUGS (2)
  1. QUETIAPINE [Suspect]
     Active Substance: QUETIAPINE
     Indication: Product prescribing error
     Route: 048
     Dates: start: 20250404, end: 20250405
  2. LAMOTRIGINE [Suspect]
     Active Substance: LAMOTRIGINE
     Indication: Product prescribing error
     Route: 048
     Dates: start: 20250404, end: 20250405

REACTIONS (5)
  - Product prescribing error [Recovered/Resolved]
  - Wrong dose [Recovered/Resolved]
  - Overdose [Recovered/Resolved]
  - Dysphagia [Recovered/Resolved]
  - Somnolence [Recovered/Resolved]

NARRATIVE: CASE EVENT DATE: 20250404
